FAERS Safety Report 14404967 (Version 3)
Quarter: 2018Q1

REPORT INFORMATION
  Report Type: Spontaneous
  Country: CN (occurrence: CN)
  Receive Date: 20180118
  Receipt Date: 20180201
  Transmission Date: 20180509
  Serious: Yes (Hospitalization, Other)
  Sender: FDA-Public Use
  Company Number: CN-009507513-1801CHN006386

PATIENT
  Age: 43 Year
  Sex: Female

DRUGS (1)
  1. MARVELON [Suspect]
     Active Substance: DESOGESTREL\ETHINYL ESTRADIOL
     Indication: CONTRACEPTION
     Dosage: UNK
     Route: 048

REACTIONS (4)
  - Cerebral infarction [Recovering/Resolving]
  - Epilepsy [Recovered/Resolved]
  - Intracranial pressure increased [Recovered/Resolved]
  - Intracranial venous sinus thrombosis [Recovering/Resolving]
